FAERS Safety Report 18722050 (Version 1)
Quarter: 2021Q1

REPORT INFORMATION
  Report Type: Spontaneous
  Country: CA (occurrence: CA)
  Receive Date: 20210111
  Receipt Date: 20210111
  Transmission Date: 20210419
  Serious: Yes (Other)
  Sender: FDA-Public Use
  Company Number: CA-AUROBINDO-AUR-APL-2021-001045

PATIENT
  Age: 68 Year
  Sex: Female

DRUGS (15)
  1. GABAPENTIN. [Suspect]
     Active Substance: GABAPENTIN
     Indication: FACIAL NEURALGIA
     Dosage: 2500 MILLIGRAM
     Route: 048
  2. GABAPENTIN. [Suspect]
     Active Substance: GABAPENTIN
     Dosage: 2200 MILLIGRAM, ONCE A DAY
     Route: 048
  3. CLONAZEPAM. [Concomitant]
     Active Substance: CLONAZEPAM
     Indication: PRODUCT USED FOR UNKNOWN INDICATION
     Dosage: UNK
     Route: 065
  4. GABAPENTIN. [Suspect]
     Active Substance: GABAPENTIN
     Dosage: 1600 MILLIGRAM, ONCE A DAY
     Route: 048
  5. GABAPENTIN. [Suspect]
     Active Substance: GABAPENTIN
     Dosage: 2500 MILLIGRAM
     Route: 048
  6. GABAPENTIN. [Suspect]
     Active Substance: GABAPENTIN
     Dosage: 3000 MILLIGRAM, ONCE A DAY
     Route: 048
  7. GABAPENTIN. [Suspect]
     Active Substance: GABAPENTIN
     Dosage: 2900 MILLIGRAM
     Route: 048
  8. GABAPENTIN. [Suspect]
     Active Substance: GABAPENTIN
     Dosage: 2300 MILLIGRAM
     Route: 048
  9. TYLENOL [Concomitant]
     Active Substance: ACETAMINOPHEN
     Indication: PRODUCT USED FOR UNKNOWN INDICATION
     Dosage: UNK
     Route: 065
  10. GABAPENTIN. [Suspect]
     Active Substance: GABAPENTIN
     Dosage: 2700 MILLIGRAM
     Route: 048
  11. SYNTHROID [Concomitant]
     Active Substance: LEVOTHYROXINE SODIUM
     Indication: PRODUCT USED FOR UNKNOWN INDICATION
     Dosage: UNK
     Route: 065
  12. GABAPENTIN. [Suspect]
     Active Substance: GABAPENTIN
     Dosage: 2400 MILLIGRAM
     Route: 048
  13. ADVIL [Concomitant]
     Active Substance: IBUPROFEN
     Indication: PRODUCT USED FOR UNKNOWN INDICATION
     Dosage: UNK
     Route: 065
  14. GABAPENTIN. [Suspect]
     Active Substance: GABAPENTIN
     Dosage: 2800 MILLIGRAM
     Route: 048
  15. GABAPENTIN. [Suspect]
     Active Substance: GABAPENTIN
     Indication: NEURALGIA
     Dosage: 2600 MILLIGRAM
     Route: 048

REACTIONS (5)
  - Off label use [Unknown]
  - Head discomfort [Unknown]
  - Intentional product use issue [Unknown]
  - Withdrawal syndrome [Unknown]
  - Headache [Unknown]
